FAERS Safety Report 9188189 (Version 2)
Quarter: 2013Q1

REPORT INFORMATION
  Report Type: Spontaneous
  Country: IT (occurrence: IT)
  Receive Date: 20130325
  Receipt Date: 20130326
  Transmission Date: 20140127
  Serious: Yes (Other)
  Sender: FDA-Public Use
  Company Number: PHHY2013IT028001

PATIENT
  Age: 70 Year
  Sex: Male

DRUGS (6)
  1. TASIGNA [Suspect]
     Indication: CHRONIC MYELOID LEUKAEMIA
     Dosage: 600 MG, DAILY
     Dates: start: 20130307
  2. XATRAL [Suspect]
  3. AVODART [Suspect]
  4. ZESTRIL [Concomitant]
  5. ZYLORIC [Concomitant]
  6. RANIDIL [Concomitant]

REACTIONS (4)
  - Gamma-glutamyltransferase increased [Unknown]
  - Drug interaction [Unknown]
  - Haemoglobin decreased [Unknown]
  - Blood alkaline phosphatase increased [Unknown]
